FAERS Safety Report 5342935-1 (Version None)
Quarter: 2007Q2

REPORT INFORMATION
  Report Type: 
  Country: None (occurrence: None)
  Receive Date: 20070416
  Receipt Date: 20070215
  Transmission Date: 20071010
  Serious: No
  Sender: FDA-Public Use
  Company Number: 2007SP000521

PATIENT
  Age: 51 Year
  Sex: Female
  Weight: 90.7194 kg

DRUGS (8)
  1. LUNESTA [Suspect]
     Indication: INSOMNIA
     Dosage: 2 MG; 1X; ORAL
     Route: 048
     Dates: start: 20070214, end: 20070214
  2. LEVOTHROID [Concomitant]
  3. CLONIDINE [Concomitant]
  4. NIFEDIPINE [Concomitant]
  5. ZINC [Concomitant]
  6. TUMS [Concomitant]
  7. VITAMIN CAP [Concomitant]
  8. VITAMIN B [Concomitant]

REACTIONS (5)
  - ERYTHEMA [None]
  - FLUSHING [None]
  - PRURITUS GENERALISED [None]
  - RASH [None]
  - SWELLING FACE [None]
